FAERS Safety Report 5953721-3 (Version None)
Quarter: 2008Q4

REPORT INFORMATION
  Report Type: 
  Country: None (occurrence: None)
  Receive Date: 20081114
  Receipt Date: 20081103
  Transmission Date: 20090506
  Serious: Yes (Hospitalization)
  Sender: FDA-Public Use
  Company Number: CN-ROCHE-594656

PATIENT
  Sex: Male
  Weight: 59 kg

DRUGS (3)
  1. XELODA [Suspect]
     Indication: GASTRIC CANCER
     Route: 048
     Dates: start: 20081020, end: 20081022
  2. XELODA [Suspect]
     Route: 048
     Dates: start: 20081101
  3. XELODA [Suspect]
     Route: 048
     Dates: start: 20080915, end: 20081019

REACTIONS (2)
  - INTESTINAL OBSTRUCTION [None]
  - WEIGHT DECREASED [None]
